FAERS Safety Report 5833030-3 (Version None)
Quarter: 2008Q3

REPORT INFORMATION
  Report Type: 
  Country: None (occurrence: None)
  Receive Date: 20080805
  Receipt Date: 20080718
  Transmission Date: 20090109
  Serious: No
  Sender: FDA-Public Use
  Company Number: US-ASTRAZENECA-2008UW15060

PATIENT
  Age: 83 Year
  Sex: Female
  Weight: 65.3 kg

DRUGS (2)
  1. NEXIUM [Suspect]
     Route: 048
     Dates: start: 20080717
  2. VITAMIN TAB [Concomitant]

REACTIONS (1)
  - BURNING SENSATION [None]
